FAERS Safety Report 15699773 (Version 3)
Quarter: 2025Q2

REPORT INFORMATION
  Report Type: Spontaneous
  Country: CA (occurrence: CA)
  Receive Date: 20181207
  Receipt Date: 20250407
  Transmission Date: 20250716
  Serious: Yes (Death, Hospitalization, Other)
  Sender: MYLAN
  Company Number: CA-PFIZER INC-2018501103

PATIENT
  Age: 19 Year
  Sex: Female

DRUGS (26)
  1. VENLAFAXINE HCL [Suspect]
     Active Substance: VENLAFAXINE HYDROCHLORIDE
     Indication: Product used for unknown indication
  2. VENLAFAXINE [Suspect]
     Active Substance: VENLAFAXINE HYDROCHLORIDE
     Indication: Ill-defined disorder
  3. VENLAFAXINE [Suspect]
     Active Substance: VENLAFAXINE HYDROCHLORIDE
  4. DIPHENHYDRAMINE [Suspect]
     Active Substance: DIPHENHYDRAMINE
     Indication: Ill-defined disorder
  5. LOXAPINE [Suspect]
     Active Substance: LOXAPINE
     Indication: Ill-defined disorder
  6. NORTRIPTYLINE [Suspect]
     Active Substance: NORTRIPTYLINE
     Indication: Major depression
  7. NORTRIPTYLINE [Suspect]
     Active Substance: NORTRIPTYLINE
     Indication: Ill-defined disorder
  8. OLANZAPINE [Suspect]
     Active Substance: OLANZAPINE
     Indication: Psychotic disorder
  9. OLANZAPINE [Suspect]
     Active Substance: OLANZAPINE
     Dosage: 5 MG, 1X/DAY REGIMEN DOSE UNIT: MILLIGRAM
  10. OLANZAPINE [Suspect]
     Active Substance: OLANZAPINE
  11. OLANZAPINE [Suspect]
     Active Substance: OLANZAPINE
  12. RISPERIDONE [Suspect]
     Active Substance: RISPERIDONE
     Indication: Psychotic disorder
  13. RISPERIDONE [Suspect]
     Active Substance: RISPERIDONE
     Dosage: 1 MG, 2X/DAY REGIMEN DOSE UNIT: MILLIGRAM
  14. RISPERIDONE [Suspect]
     Active Substance: RISPERIDONE
  15. RISPERIDONE [Suspect]
     Active Substance: RISPERIDONE
  16. RISPERIDONE [Suspect]
     Active Substance: RISPERIDONE
  17. RISPERIDONE [Suspect]
     Active Substance: RISPERIDONE
  18. RISPERIDONE [Suspect]
     Active Substance: RISPERIDONE
  19. RISPERIDONE [Suspect]
     Active Substance: RISPERIDONE
  20. NORTRIPTYLINE [Suspect]
     Active Substance: NORTRIPTYLINE
     Indication: Major depression
  21. NORTRIPTYLINE [Suspect]
     Active Substance: NORTRIPTYLINE
     Indication: Ill-defined disorder
  22. NORTRIPTYLINE [Suspect]
     Active Substance: NORTRIPTYLINE
     Indication: Psychotic disorder
  23. OLANZAPINE [Concomitant]
     Active Substance: OLANZAPINE
  24. LOXAPINE [Concomitant]
     Active Substance: LOXAPINE
  25. DIPHENHYDRAMINE [Concomitant]
     Active Substance: DIPHENHYDRAMINE
  26. VENLAFAXINE [Concomitant]
     Active Substance: VENLAFAXINE HYDROCHLORIDE

REACTIONS (12)
  - Suicide attempt [Fatal]
  - Depressive symptom [Fatal]
  - Psychotic disorder [Fatal]
  - Pulmonary embolism [Fatal]
  - Loss of consciousness [Fatal]
  - Hypotension [Fatal]
  - Pulse absent [Fatal]
  - Hyperprolactinaemia [Fatal]
  - Amenorrhoea [Fatal]
  - Condition aggravated [Fatal]
  - Weight increased [Fatal]
  - Overdose [Fatal]
